FAERS Safety Report 9868738 (Version 2)
Quarter: 2014Q1

REPORT INFORMATION
  Report Type: Spontaneous
  Country: US (occurrence: US)
  Receive Date: 20140204
  Receipt Date: 20140206
  Transmission Date: 20141002
  Serious: No
  Sender: FDA-Public Use
  Company Number: US-009507513-1401USA014565

PATIENT
  Sex: Female

DRUGS (2)
  1. PROVENTIL [Suspect]
     Indication: ASTHMA
     Dosage: 1 STANDARD DOSE OF 6.7 (NO UNITS PROVIDED)/ 2 PUFFS IN THE MORNING AND 2 AT NIGHT
     Dates: start: 201312
  2. ALVESCO [Concomitant]

REACTIONS (4)
  - Anxiety [Recovered/Resolved]
  - Chest discomfort [Recovered/Resolved]
  - Product quality issue [Unknown]
  - Drug dose omission [Unknown]
